FAERS Safety Report 10245085 (Version 2)
Quarter: 2014Q2

REPORT INFORMATION
  Report Type: Spontaneous
  Country: US (occurrence: US)
  Receive Date: 20140618
  Receipt Date: 20140618
  Transmission Date: 20141212
  Serious: No
  Sender: FDA-Public Use
  Company Number: US-GALDERMA-US14001515

PATIENT
  Age: 50 Year
  Sex: Male

DRUGS (1)
  1. MIRVASO (BRIMONIDINE) TOPICAL GEL, 0.33% [Suspect]
     Indication: ROSACEA
     Dosage: 0.33%
     Route: 061
     Dates: start: 2013, end: 201403

REACTIONS (5)
  - Staphylococcal skin infection [Unknown]
  - Swelling face [Not Recovered/Not Resolved]
  - Rebound effect [Not Recovered/Not Resolved]
  - Activities of daily living impaired [Unknown]
  - Erythema [Not Recovered/Not Resolved]
